FAERS Safety Report 7376334-8 (Version None)
Quarter: 2011Q1

REPORT INFORMATION
  Report Type: 
  Country: None (occurrence: None)
  Receive Date: 20110325
  Receipt Date: 20110316
  Transmission Date: 20110831
  Serious: No
  Sender: FDA-Public Use
  Company Number: US-B.I. PHARMACEUTICALS,INC./RIDGEFIELD-2011-BP-01094BP

PATIENT
  Sex: Female

DRUGS (2)
  1. QVAR 40 [Concomitant]
     Indication: ASTHMA
  2. PRADAXA [Suspect]
     Indication: ATRIAL FIBRILLATION
     Dosage: 300 MG
     Route: 048
     Dates: start: 20110101

REACTIONS (3)
  - RASH MACULAR [None]
  - MUSCULAR WEAKNESS [None]
  - PRURITUS [None]
